FAERS Safety Report 12338860 (Version 3)
Quarter: 2018Q4

REPORT INFORMATION
  Report Type: Report from Study
  Country: US (occurrence: US)
  Receive Date: 20160505
  Receipt Date: 20181109
  Transmission Date: 20190204
  Serious: Yes (Hospitalization, Other)
  Sender: FDA-Public Use
  Company Number: US-ACTELION-A-US2016-135582

PATIENT
  Age: 80 Year
  Sex: Male

DRUGS (2)
  1. OPSUMIT [Suspect]
     Active Substance: MACITENTAN
     Indication: PULMONARY ARTERIAL HYPERTENSION
     Dosage: 10 MG, QD
     Route: 048
     Dates: start: 20140313
  2. REVATIO [Concomitant]
     Active Substance: SILDENAFIL CITRATE

REACTIONS (6)
  - Cardiac disorder [Unknown]
  - Pulmonary hypertension [Unknown]
  - Dyspnoea [Recovering/Resolving]
  - Hospitalisation [Unknown]
  - Blood pressure decreased [Recovering/Resolving]
  - Atrial fibrillation [Recovering/Resolving]
